FAERS Safety Report 8272479-9 (Version None)
Quarter: 2012Q2

REPORT INFORMATION
  Report Type: 
  Country: None (occurrence: None)
  Receive Date: 20120410
  Receipt Date: 20120327
  Transmission Date: 20120825
  Serious: Yes (Hospitalization)
  Sender: FDA-Public Use
  Company Number: JP-AMGEN-JPNSP2012021569

PATIENT
  Age: 46 Year
  Sex: Male

DRUGS (12)
  1. HORNEL [Suspect]
     Route: 048
  2. CANDESARTAN CILEXETIL [Suspect]
     Route: 048
  3. FAMOTIDINE [Suspect]
     Dosage: UNCERTAINTY
     Route: 048
  4. CLONAZEPAM [Suspect]
     Route: 048
  5. CINACALCET HYDROCHLORIDE [Suspect]
     Indication: HYPERPARATHYROIDISM SECONDARY
     Route: 048
  6. LEVOTHYROXINE SODIUM [Suspect]
     Route: 048
  7. ADONA [Suspect]
     Route: 048
  8. EQUA [Suspect]
     Route: 048
  9. FUTHAN [Suspect]
     Dosage: UNCERTAINTY
     Route: 040
  10. FOSRENOL [Suspect]
     Dosage: 250 MG, UNK
     Route: 048
  11. PRECIPITATED CALCIUM CARBONATE [Suspect]
     Dosage: 500 MG, UNK
     Route: 048
  12. L-CARTIN [Suspect]
     Route: 048

REACTIONS (2)
  - NEUTROPHIL COUNT DECREASED [None]
  - EOSINOPHIL COUNT INCREASED [None]
